FAERS Safety Report 5257839-2 (Version None)
Quarter: 2007Q1

REPORT INFORMATION
  Report Type: 
  Country: None (occurrence: None)
  Receive Date: 20070307
  Receipt Date: 20060929
  Transmission Date: 20070707
  Serious: No
  Sender: FDA-Public Use
  Company Number: US-GLAXOSMITHKLINE-A0620707A

PATIENT
  Age: 56 Year
  Sex: Male
  Weight: 77.7 kg

DRUGS (5)
  1. REQUIP [Suspect]
     Indication: RESTLESS LEGS SYNDROME
     Dosage: .5MG PER DAY
     Route: 048
     Dates: start: 20060912
  2. PAXIL [Concomitant]
  3. HYDROCODONE [Concomitant]
  4. COMBIVIR [Concomitant]
  5. HIV ANTIVIRAL AGENTS UNSPECIFIED [Concomitant]

REACTIONS (2)
  - NAUSEA [None]
  - SOMNOLENCE [None]
